FAERS Safety Report 9418922 (Version 2)
Quarter: 2013Q3

REPORT INFORMATION
  Report Type: Report from Study
  Country: US (occurrence: US)
  Receive Date: 20130725
  Receipt Date: 20130808
  Transmission Date: 20140515
  Serious: Yes (Other)
  Sender: FDA-Public Use
  Company Number: US-ROCHE-1251712

PATIENT
  Age: 21 Year
  Sex: Male

DRUGS (5)
  1. RITUXAN [Suspect]
     Indication: IMMUNE THROMBOCYTOPENIC PURPURA
     Dosage: PATIENT RECEIVED DOSES OF DRUG ON 09/JUL/2013 AND 18/JUL/2013
     Route: 042
  2. ALOXI [Concomitant]
     Route: 042
  3. DEXAMETHASONE [Concomitant]
     Route: 042
  4. BENADRYL (UNITED STATES) [Concomitant]
     Route: 042
  5. PEPCID [Concomitant]
     Route: 042

REACTIONS (9)
  - Hepatic encephalopathy [Unknown]
  - White blood cell count decreased [Unknown]
  - Neutrophil count decreased [Unknown]
  - Splenomegaly [Unknown]
  - Vomiting [Unknown]
  - Nausea [Unknown]
  - Essential hypertension [Unknown]
  - Anxiety [Unknown]
  - Hepatitis A [Unknown]
